FAERS Safety Report 24961522 (Version 1)
Quarter: 2025Q1

REPORT INFORMATION
  Report Type: Spontaneous
  Country: HU (occurrence: HU)
  Receive Date: 20250212
  Receipt Date: 20250212
  Transmission Date: 20250409
  Serious: Yes (Other)
  Sender: SANDOZ
  Company Number: HU-002147023-NVSC2025HU022467

PATIENT
  Age: 68 Year
  Sex: Male

DRUGS (1)
  1. ZOLEDRONIC ACID [Suspect]
     Active Substance: ZOLEDRONIC ACID
     Indication: Prostate cancer metastatic
     Dosage: 4 MG, Q4W
     Route: 040

REACTIONS (3)
  - Prostate cancer metastatic [Unknown]
  - Malignant neoplasm progression [Unknown]
  - Osteonecrosis of jaw [Unknown]
